FAERS Safety Report 4794482-3 (Version None)
Quarter: 2005Q4

REPORT INFORMATION
  Report Type: 
  Country: None (occurrence: None)
  Receive Date: 20051011
  Receipt Date: 20051003
  Transmission Date: 20060501
  Serious: Yes (Hospitalization)
  Sender: FDA-Public Use
  Company Number: 200513224FR

PATIENT
  Age: 40 Year
  Sex: Male

DRUGS (8)
  1. CLAFORAN [Suspect]
     Dates: start: 20050308, end: 20050311
  2. GENTAMICIN [Suspect]
     Dates: start: 20050308, end: 20050311
  3. MORPHINE [Suspect]
     Route: 058
     Dates: start: 20050308, end: 20050314
  4. NEUPOGEN [Suspect]
     Dates: start: 20050305, end: 20050311
  5. DOXORUBICIN HCL [Concomitant]
     Indication: HODGKIN'S DISEASE
     Dates: start: 20050222
  6. BLEOMYCIN [Concomitant]
     Indication: HODGKIN'S DISEASE
     Dates: start: 20050222
  7. VINBLASTINE [Concomitant]
     Indication: HODGKIN'S DISEASE
     Dates: start: 20050222
  8. DACARBAZINE [Concomitant]
     Indication: HODGKIN'S DISEASE
     Dates: start: 20050222

REACTIONS (3)
  - ACUTE FEBRILE NEUTROPHILIC DERMATOSIS [None]
  - PRURITUS [None]
  - RASH [None]
